FAERS Safety Report 25999701 (Version 1)
Quarter: 2025Q4

REPORT INFORMATION
  Report Type: Spontaneous
  Country: US (occurrence: None)
  Receive Date: 20251104
  Receipt Date: 20251104
  Transmission Date: 20260117
  Serious: No
  Sender: FDA-CTU
  Company Number: None

PATIENT
  Age: 74 Year
  Sex: Female

DRUGS (1)
  1. DIMETHYL FUMARATE [Suspect]
     Active Substance: DIMETHYL FUMARATE
     Indication: Multiple sclerosis
     Dosage: 1 TABLET BID ORAL
     Route: 048
     Dates: start: 20250619, end: 20251028

REACTIONS (2)
  - Diarrhoea [None]
  - Drug intolerance [None]

NARRATIVE: CASE EVENT DATE: 20251020
